FAERS Safety Report 15103757 (Version 3)
Quarter: 2018Q3

REPORT INFORMATION
  Report Type: Report from Study
  Country: IT (occurrence: IT)
  Receive Date: 20180703
  Receipt Date: 20180820
  Transmission Date: 20181010
  Serious: Yes (Hospitalization, Congenital Anomaly)
  Sender: FDA-Public Use
  Company Number: IT-TEVA-2018-IT-919422

PATIENT
  Age: 74 Year
  Sex: Female

DRUGS (8)
  1. AMIODARONE [Concomitant]
     Active Substance: AMIODARONE
     Route: 065
  2. LORAZEPAM. [Concomitant]
     Active Substance: LORAZEPAM
     Route: 065
  3. WARFARIN SODIUM. [Concomitant]
     Active Substance: WARFARIN SODIUM
     Route: 065
  4. METHOTREXATE 7,5 MG/ML SOLUZIONE INIETTABILE [Suspect]
     Active Substance: METHOTREXATE SODIUM
     Indication: PSORIATIC ARTHROPATHY
     Route: 065
     Dates: start: 20170801
  5. FEBUXOSTAT. [Concomitant]
     Active Substance: FEBUXOSTAT
     Route: 065
  6. PANTOPRAZOLE [Concomitant]
     Active Substance: PANTOPRAZOLE
     Route: 065
  7. SIMVASTATIN. [Concomitant]
     Active Substance: SIMVASTATIN
     Route: 065
  8. RAMIPRIL. [Concomitant]
     Active Substance: RAMIPRIL
     Route: 065

REACTIONS (2)
  - Aplasia [Recovered/Resolved]
  - Bone marrow failure [Recovered/Resolved]

NARRATIVE: CASE EVENT DATE: 20180420
